FAERS Safety Report 4486603-7 (Version None)
Quarter: 2004Q4

REPORT INFORMATION
  Report Type: 
  Country: None (occurrence: None)
  Receive Date: 20041027
  Receipt Date: 20041019
  Transmission Date: 20050328
  Serious: Yes (Other)
  Sender: FDA-Public Use
  Company Number: PHEH2004US11225

PATIENT
  Age: 81 Year
  Sex: Female

DRUGS (2)
  1. LAMISIL [Suspect]
     Dosage: 250 MG, ONCE/SINGLE
     Route: 048
     Dates: start: 20041018, end: 20041018
  2. MENTAX ^PENEDERM^ [Concomitant]
     Indication: RASH ERYTHEMATOUS
     Route: 061
     Dates: start: 20041012

REACTIONS (6)
  - BLOOD PRESSURE INCREASED [None]
  - BURNING SENSATION [None]
  - DIZZINESS [None]
  - HYPERHIDROSIS [None]
  - INSOMNIA [None]
  - PRURITUS [None]
